FAERS Safety Report 15986368 (Version 2)
Quarter: 2019Q1

REPORT INFORMATION
  Report Type: Spontaneous
  Country: PL (occurrence: PL)
  Receive Date: 20190220
  Receipt Date: 20190226
  Transmission Date: 20190418
  Serious: Yes (Hospitalization)
  Sender: FDA-Public Use
  Company Number: PHHY2019PL036438

PATIENT
  Age: 5 Year
  Sex: Female

DRUGS (1)
  1. CLARITHROMYCIN. [Suspect]
     Active Substance: CLARITHROMYCIN
     Indication: PNEUMONIA
     Dosage: UNK
     Route: 065

REACTIONS (11)
  - Liver palpable [Unknown]
  - Oxygen saturation decreased [Unknown]
  - Cough [Unknown]
  - Heart rate increased [Unknown]
  - Tachypnoea [Unknown]
  - Oral contusion [Unknown]
  - Hyperleukocytosis [Unknown]
  - Respiratory rate increased [Unknown]
  - Dyspnoea [Recovering/Resolving]
  - Fibrinous bronchitis [Unknown]
  - Bronchial secretion retention [Unknown]
